FAERS Safety Report 20843229 (Version 1)
Quarter: 2022Q2

REPORT INFORMATION
  Report Type: Report from Study
  Country: US (occurrence: US)
  Receive Date: 20220518
  Receipt Date: 20220518
  Transmission Date: 20220720
  Serious: Yes (Hospitalization, Other)
  Sender: FDA-Public Use
  Company Number: US-GILEAD-2022-0581712

PATIENT
  Age: 31 Year
  Sex: Female

DRUGS (32)
  1. AZTREONAM LYSINE [Suspect]
     Active Substance: AZTREONAM LYSINE
     Indication: Cystic fibrosis
     Route: 065
  2. TRIKAFTA [Concomitant]
     Active Substance: ELEXACAFTOR\IVACAFTOR\TEZACAFTOR
  3. TOBRAMYCIN [Concomitant]
     Active Substance: TOBRAMYCIN
  4. ALBUTEROL SULFATE [Concomitant]
     Active Substance: ALBUTEROL SULFATE
  5. PROAIR HFA [Concomitant]
     Active Substance: ALBUTEROL SULFATE
  6. BROVANA [Concomitant]
     Active Substance: ARFORMOTEROL TARTRATE
  7. VITAMIN C [Concomitant]
     Active Substance: ASCORBIC ACID
  8. AZITHROMYCIN [Concomitant]
     Active Substance: AZITHROMYCIN
  9. BUDESONIDE [Concomitant]
     Active Substance: BUDESONIDE
  10. SUBOXONE [Concomitant]
     Active Substance: BUPRENORPHINE HYDROCHLORIDE\NALOXONE HYDROCHLORIDE
  11. VITAMIN D3 [Concomitant]
     Active Substance: CHOLECALCIFEROL
  12. DIPHENHYDRAMINE HYDROCHLORIDE [Concomitant]
     Active Substance: DIPHENHYDRAMINE HYDROCHLORIDE
  13. PULMOZYME [Concomitant]
     Active Substance: DORNASE ALFA
  14. FLUTICASONE PROPIONATE [Concomitant]
     Active Substance: FLUTICASONE PROPIONATE
  15. LACTULOSE [Concomitant]
     Active Substance: LACTULOSE
  16. LORATADINE [Concomitant]
     Active Substance: LORATADINE
  17. ARTIFICIAL TEARS [HYPROMELLOSE] [Concomitant]
  18. OMEPRAZOLE [Concomitant]
     Active Substance: OMEPRAZOLE
  19. ZENPEP [Concomitant]
     Active Substance: PANCRELIPASE AMYLASE\PANCRELIPASE LIPASE\PANCRELIPASE PROTEASE
  20. POLYETHYLENE GLYCOL 3350 [Concomitant]
     Active Substance: POLYETHYLENE GLYCOL 3350
  21. SODIUM CHLORIDE [Concomitant]
     Active Substance: SODIUM CHLORIDE
  22. SPIRIVA [Concomitant]
     Active Substance: TIOTROPIUM BROMIDE MONOHYDRATE
  23. URSODIOL [Concomitant]
     Active Substance: URSODIOL
  24. METHADONE HYDROCHLORIDE [Concomitant]
     Active Substance: METHADONE HYDROCHLORIDE
  25. ADVAIR HFA [Concomitant]
     Active Substance: FLUTICASONE PROPIONATE\SALMETEROL XINAFOATE
  26. FOLIC ACID [Concomitant]
     Active Substance: FOLIC ACID
  27. FERROUS SULFATE [Concomitant]
     Active Substance: FERROUS SULFATE
  28. DESLORATADINE [Concomitant]
     Active Substance: DESLORATADINE
  29. BIOTENE DRY MOUTH [SODIUM FLUOROPHOSPHATE] [Concomitant]
  30. LACTOBACILLUS ACID [Concomitant]
  31. CALCIUM CARBONATE [Concomitant]
     Active Substance: CALCIUM CARBONATE
  32. PERTZYE [Concomitant]
     Active Substance: PANCRELIPASE AMYLASE\PANCRELIPASE LIPASE\PANCRELIPASE PROTEASE

REACTIONS (1)
  - Pneumonia [Not Recovered/Not Resolved]

NARRATIVE: CASE EVENT DATE: 20220511
